FAERS Safety Report 10434474 (Version 4)
Quarter: 2015Q1

REPORT INFORMATION
  Report Type: Spontaneous
  Country: JP (occurrence: JP)
  Receive Date: 20140905
  Receipt Date: 20150217
  Transmission Date: 20150720
  Serious: Yes (Death, Life-Threatening, Other)
  Sender: FDA-Public Use
  Company Number: JP-ASTRAZENECA-2014SE64643

PATIENT
  Age: 29771 Day
  Sex: Male

DRUGS (10)
  1. RINACETO [Concomitant]
     Indication: FLUID REPLACEMENT
     Route: 051
     Dates: start: 20140814, end: 20140817
  2. AMIPAREN [Concomitant]
     Indication: AMINO ACID LEVEL DECREASED
     Route: 041
     Dates: start: 20140816, end: 20140818
  3. MEROPEN [Suspect]
     Active Substance: MEROPENEM
     Indication: PNEUMONIA
     Route: 042
     Dates: start: 20140813, end: 20140821
  4. PHENOBAL [Concomitant]
     Active Substance: PHENOBARBITAL
     Indication: SEIZURE
     Route: 041
     Dates: start: 20140820, end: 20140822
  5. PHYSIO 35 [Concomitant]
     Active Substance: ELECTROLYTES NOS
     Indication: FLUID REPLACEMENT
     Route: 051
     Dates: start: 20140814, end: 20140818
  6. KN NO.3 [Concomitant]
     Indication: FLUID REPLACEMENT
     Route: 051
     Dates: start: 20140809, end: 20140812
  7. RINACETO [Concomitant]
     Indication: FLUID REPLACEMENT
     Route: 051
     Dates: start: 20140813, end: 20140813
  8. MEROPEN [Suspect]
     Active Substance: MEROPENEM
     Indication: PNEUMONIA
     Route: 042
     Dates: start: 20140810, end: 20140812
  9. CERCINE [Concomitant]
     Active Substance: DIAZEPAM
     Indication: SEIZURE
     Route: 041
     Dates: start: 20140820, end: 20140822
  10. ALEVIATIN [Concomitant]
     Active Substance: PHENYTOIN SODIUM
     Indication: SEIZURE
     Route: 041
     Dates: start: 20140819, end: 20140822

REACTIONS (3)
  - Disseminated intravascular coagulation [Unknown]
  - Acute respiratory failure [Fatal]
  - Seizure [Fatal]

NARRATIVE: CASE EVENT DATE: 20140819
